FAERS Safety Report 7122466-9 (Version None)
Quarter: 2010Q4

REPORT INFORMATION
  Report Type: 
  Country: None (occurrence: None)
  Receive Date: 20101124
  Receipt Date: 20101119
  Transmission Date: 20110411
  Serious: Yes (Life-Threatening, Hospitalization)
  Sender: FDA-Public Use
  Company Number: US-MERCK-1011USA02588

PATIENT
  Sex: Female

DRUGS (2)
  1. JANUVIA [Suspect]
     Route: 048
     Dates: start: 20100101, end: 20100901
  2. METFORMIN [Concomitant]
     Route: 065

REACTIONS (2)
  - HEPATIC FAILURE [None]
  - PANCREATITIS [None]
